FAERS Safety Report 7971889-4 (Version None)
Quarter: 2011Q4

REPORT INFORMATION
  Report Type: 
  Country: None (occurrence: None)
  Receive Date: 20111212
  Receipt Date: 20111205
  Transmission Date: 20120403
  Serious: Yes (Other)
  Sender: FDA-Public Use
  Company Number: PHHY2011FR107304

PATIENT
  Sex: Male

DRUGS (1)
  1. LAMISIL [Suspect]
     Dates: start: 20110101

REACTIONS (4)
  - TRANSAMINASES INCREASED [None]
  - HEPATITIS [None]
  - GAMMA-GLUTAMYLTRANSFERASE INCREASED [None]
  - C-REACTIVE PROTEIN INCREASED [None]
